FAERS Safety Report 4684315-8 (Version None)
Quarter: 2005Q2

REPORT INFORMATION
  Report Type: 
  Country: None (occurrence: None)
  Receive Date: 20050607
  Receipt Date: 20050524
  Transmission Date: 20051028
  Serious: Yes (Hospitalization, Disabling)
  Sender: FDA-Public Use
  Company Number: 2005SE03068

PATIENT
  Age: 29426 Day
  Sex: Female
  Weight: 58 kg

DRUGS (1)
  1. NOLVADEX [Suspect]
     Indication: BREAST CANCER
     Route: 048
     Dates: start: 20001223, end: 20050523

REACTIONS (1)
  - CEREBRAL ISCHAEMIA [None]
